FAERS Safety Report 6002197-9 (Version None)
Quarter: 2008Q4

REPORT INFORMATION
  Report Type: 
  Country: None (occurrence: None)
  Receive Date: 20081212
  Receipt Date: 20081202
  Transmission Date: 20090506
  Serious: Yes (Congenital Anomaly)
  Sender: FDA-Public Use
  Company Number: 2008AP000124

PATIENT
  Sex: Female

DRUGS (9)
  1. PAROXETINE HYDROCHLORIDE [Suspect]
     Dosage: 10 MG; QD; TRPL
     Route: 064
     Dates: start: 19990101, end: 20050401
  2. ... [Concomitant]
  3. ... [Concomitant]
  4. ... [Concomitant]
  5. ... [Concomitant]
  6. ... [Concomitant]
  7. ... [Concomitant]
  8. ... [Concomitant]
  9. ... [Concomitant]

REACTIONS (6)
  - CONGENITAL ANOMALY [None]
  - CONGENITAL PULMONARY HYPERTENSION [None]
  - GASTROOESOPHAGEAL REFLUX DISEASE [None]
  - MATERNAL DRUGS AFFECTING FOETUS [None]
  - PATENT DUCTUS ARTERIOSUS [None]
  - SLEEP APNOEA SYNDROME [None]
